FAERS Safety Report 6416952-4 (Version None)
Quarter: 2009Q4

REPORT INFORMATION
  Report Type: 
  Country: None (occurrence: None)
  Receive Date: 20091027
  Receipt Date: 20090623
  Transmission Date: 20100525
  Serious: No
  Sender: FDA-Public Use
  Company Number: US-ALLERGAN-0908876US

PATIENT
  Age: 68 Year
  Sex: Male

DRUGS (2)
  1. ALPHAGAN P [Suspect]
     Indication: GLAUCOMA
     Route: 047
     Dates: start: 20070201
  2. COSOPT [Concomitant]
     Indication: GLAUCOMA

REACTIONS (1)
  - INTRAOCULAR PRESSURE INCREASED [None]
